FAERS Safety Report 20884349 (Version 4)
Quarter: 2022Q3

REPORT INFORMATION
  Report Type: Spontaneous
  Country: BR (occurrence: BR)
  Receive Date: 20220527
  Receipt Date: 20220701
  Transmission Date: 20221026
  Serious: Yes (Hospitalization)
  Sender: FDA-Public Use
  Company Number: BR-FERRINGPH-2022FE02563

PATIENT

DRUGS (8)
  1. FIRMAGON [Suspect]
     Active Substance: DEGARELIX ACETATE
     Indication: Prostate cancer metastatic
     Dosage: 80 MG
     Route: 065
     Dates: start: 2016
  2. ABIRATERONE [Concomitant]
     Active Substance: ABIRATERONE
     Dosage: UNK
     Route: 065
  3. ATACAND [Concomitant]
     Active Substance: CANDESARTAN CILEXETIL
     Dosage: UNK
     Route: 065
  4. LIPITOR [Concomitant]
     Active Substance: ATORVASTATIN CALCIUM
     Dosage: UNK
     Route: 065
  5. BISOPROLOL FUMARATE [Concomitant]
     Active Substance: BISOPROLOL FUMARATE
     Dosage: UNK
     Route: 065
  6. GLIFAGE [Concomitant]
     Active Substance: METFORMIN HYDROCHLORIDE
     Dosage: UNK
     Route: 065
  7. OSCAL D [CALCIUM CARBONATE;COLECALCIFEROL] [Concomitant]
     Dosage: UNK
     Route: 065
  8. DEXAMETHASONE [Concomitant]
     Active Substance: DEXAMETHASONE
     Dosage: UNK
     Route: 065

REACTIONS (6)
  - Sepsis [Not Recovered/Not Resolved]
  - Confusional state [Not Recovered/Not Resolved]
  - Tachypnoea [Not Recovered/Not Resolved]
  - Hypotension [Recovering/Resolving]
  - General physical health deterioration [Unknown]
  - Injection site inflammation [Recovering/Resolving]

NARRATIVE: CASE EVENT DATE: 20220513
